FAERS Safety Report 16633895 (Version 1)
Quarter: 2019Q3

REPORT INFORMATION
  Report Type: Spontaneous
  Country: US (occurrence: US)
  Receive Date: 20190725
  Receipt Date: 20190725
  Transmission Date: 20191004
  Serious: No
  Sender: FDA-Public Use
  Company Number: US-DERMIRA, INC.-US-2019DER000241

PATIENT

DRUGS (9)
  1. VITAMINS                           /00067501/ [Concomitant]
     Active Substance: VITAMINS
     Indication: PRODUCT USED FOR UNKNOWN INDICATION
     Dosage: UNK
  2. BLACK COHOSH                       /01456801/ [Concomitant]
     Active Substance: BLACK COHOSH
     Indication: PREMATURE MENOPAUSE
     Dosage: UNK, QD
  3. QBREXZA [Suspect]
     Active Substance: GLYCOPYRRONIUM TOSYLATE
     Indication: HYPERHIDROSIS
     Dosage: UNK, QD
     Route: 061
     Dates: start: 201902, end: 2019
  4. QBREXZA [Suspect]
     Active Substance: GLYCOPYRRONIUM TOSYLATE
     Dosage: UNK, QD
     Route: 061
     Dates: start: 20190307, end: 201904
  5. ZYRTEC [Concomitant]
     Active Substance: CETIRIZINE HYDROCHLORIDE
     Indication: HYPERSENSITIVITY
     Dosage: UNK, PRN
  6. FLONASE                            /00908302/ [Concomitant]
     Active Substance: MOMETASONE FUROATE
     Indication: HYPERSENSITIVITY
     Dosage: UNK, PRN
  7. EPSOM SALT [Concomitant]
     Active Substance: MAGNESIUM SULFATE
     Indication: SKIN ODOUR ABNORMAL
     Dosage: SOAKED FEET ONCE DAILY FOR 3 DAYS
     Route: 061
     Dates: start: 20190403
  8. EPSOM SALT [Concomitant]
     Active Substance: MAGNESIUM SULFATE
     Dosage: SOAK FEET 3 TIMES DAILY
     Route: 061
     Dates: start: 20190406, end: 20190407
  9. BENADRYL [Concomitant]
     Active Substance: DIPHENHYDRAMINE HYDROCHLORIDE
     Indication: HYPERSENSITIVITY
     Dosage: UNK, PRN

REACTIONS (10)
  - Eye irritation [Not Recovered/Not Resolved]
  - Limb discomfort [Not Recovered/Not Resolved]
  - Dry mouth [Recovered/Resolved]
  - Skin odour abnormal [Not Recovered/Not Resolved]
  - Off label use [Unknown]
  - Vulvovaginal dryness [Not Recovered/Not Resolved]
  - Nasal discomfort [Not Recovered/Not Resolved]
  - Nasal dryness [Not Recovered/Not Resolved]
  - Hyperhidrosis [Not Recovered/Not Resolved]
  - Headache [Not Recovered/Not Resolved]

NARRATIVE: CASE EVENT DATE: 201902
